FAERS Safety Report 5673618-6 (Version None)
Quarter: 2008Q2

REPORT INFORMATION
  Report Type: 
  Country: None (occurrence: None)
  Receive Date: 20080225
  Receipt Date: 20061229
  Transmission Date: 20081010
  Serious: Yes (Disabling, Other)
  Sender: FDA-Public Use
  Company Number: WAES 0612USA02812

PATIENT
  Sex: Female

DRUGS (6)
  1. ZOCOR [Suspect]
     Dosage: PO
     Route: 048
     Dates: start: 19920101
  2. GLUCOPHAGE [Concomitant]
  3. HUMULIN R [Concomitant]
  4. LOTENSIN [Concomitant]
  5. VERELAN [Concomitant]
  6. ASPIRIN [Concomitant]

REACTIONS (3)
  - MYOPATHY [None]
  - NEUROPATHY PERIPHERAL [None]
  - RHABDOMYOLYSIS [None]
